FAERS Safety Report 5321303-2 (Version None)
Quarter: 2007Q2

REPORT INFORMATION
  Report Type: 
  Country: None (occurrence: None)
  Receive Date: 20070510
  Receipt Date: 20070507
  Transmission Date: 20071010
  Serious: Yes (Hospitalization, Other)
  Sender: FDA-Public Use
  Company Number: LB-BRISTOL-MYERS SQUIBB COMPANY-13772330

PATIENT
  Age: 74 Year
  Sex: Female

DRUGS (3)
  1. GATIFLOXACIN TABS [Suspect]
     Indication: BRONCHITIS
     Route: 048
  2. PREDNISONE TAB [Concomitant]
  3. OMEPRAZOLE [Concomitant]

REACTIONS (2)
  - CONVULSION [None]
  - LEUKOARAIOSIS [None]
